FAERS Safety Report 8849506 (Version 2)
Quarter: 2012Q4

REPORT INFORMATION
  Report Type: 
  Country: US (occurrence: US)
  Receive Date: 20121019
  Receipt Date: 20121019
  Transmission Date: 20130627
  Serious: Yes (Hospitalization)
  Sender: FDA-Public Use
  Company Number: US-TEVA-364435USA

PATIENT
  Age: 73 Year
  Sex: Female

DRUGS (1)
  1. ACTIQ [Suspect]
     Indication: PAIN
     Dosage: 400 ug
     Route: 002
     Dates: start: 2006

REACTIONS (2)
  - Metabolic encephalopathy [Recovered/Resolved]
  - Off label use [Unknown]
